FAERS Safety Report 17502059 (Version 3)
Quarter: 2020Q1

REPORT INFORMATION
  Report Type: Report from Study
  Country: CO (occurrence: CO)
  Receive Date: 20200305
  Receipt Date: 20200327
  Transmission Date: 20200409
  Serious: Yes (Hospitalization)
  Sender: FDA-Public Use
  Company Number: CO-TEVA-2020-CO-1194830

PATIENT
  Age: 55 Year
  Sex: Female
  Weight: 77 kg

DRUGS (19)
  1. HYDROCHLOROTHIAZIDE. [Concomitant]
     Active Substance: HYDROCHLOROTHIAZIDE
     Indication: HYPERTENSION
     Dosage: 25 MILLIGRAM DAILY;
     Route: 048
  2. FOLIC ACID. [Concomitant]
     Active Substance: FOLIC ACID
     Dosage: 2 MILLIGRAM DAILY;
     Dates: start: 20191022
  3. BUPROPION. [Concomitant]
     Active Substance: BUPROPION
     Dosage: 150 MILLIGRAM DAILY;
     Route: 048
     Dates: start: 201906
  4. PREGABALIN. [Concomitant]
     Active Substance: PREGABALIN
     Dosage: 225 MILLIGRAM DAILY;
     Route: 048
     Dates: start: 20190830
  5. DULOXETINE. [Concomitant]
     Active Substance: DULOXETINE
     Indication: FIBROMYALGIA
     Dosage: 120 MILLIGRAM DAILY;
     Route: 048
     Dates: start: 20190801
  6. METFORMIN [Concomitant]
     Active Substance: METFORMIN HYDROCHLORIDE
     Indication: GLUCOSE TOLERANCE IMPAIRED
     Dosage: 850 MILLIGRAM DAILY;
     Route: 048
     Dates: start: 20191101
  7. ACETAMINOPHEN. [Concomitant]
     Active Substance: ACETAMINOPHEN
     Dosage: 1995 MILLIGRAM DAILY;
     Route: 048
     Dates: start: 20190830
  8. METHOTREXATE. [Suspect]
     Active Substance: METHOTREXATE
     Indication: PSORIATIC ARTHROPATHY
     Route: 058
     Dates: start: 20190509, end: 20191212
  9. HUMIRA [Suspect]
     Active Substance: ADALIMUMAB
     Route: 058
     Dates: start: 20190829, end: 20191212
  10. TRAZODONE [Concomitant]
     Active Substance: TRAZODONE HYDROCHLORIDE
     Indication: FIBROMYALGIA
     Dosage: 100 MILLIGRAM DAILY;
     Route: 048
  11. LOSARTAN. [Concomitant]
     Active Substance: LOSARTAN
     Indication: HYPERTENSION
     Dosage: 50 MILLIGRAM DAILY;
     Route: 048
     Dates: start: 2013
  12. CYANOCOBALAMIN. [Concomitant]
     Active Substance: CYANOCOBALAMIN
     Dosage: SUPPLEMENTAL VITAMIN B12 THERAPY?1 MG,1 IN 15 D
     Route: 030
     Dates: start: 2018
  13. ACETAMINOPHEN. [Concomitant]
     Active Substance: ACETAMINOPHEN
     Indication: PSORIATIC ARTHROPATHY
     Dosage: 1300 MILLIGRAM DAILY;
     Route: 048
     Dates: start: 20190410, end: 201907
  14. ACETAMINOPHEN. [Concomitant]
     Active Substance: ACETAMINOPHEN
     Dosage: 2000 MILLIGRAM DAILY;
     Route: 048
     Dates: start: 201907, end: 20190924
  15. HUMIRA [Suspect]
     Active Substance: ADALIMUMAB
     Indication: PSORIATIC ARTHROPATHY
     Route: 058
     Dates: start: 20190509, end: 20190815
  16. FOLIC ACID. [Concomitant]
     Active Substance: FOLIC ACID
     Dosage: 1 MILLIGRAM DAILY; BECAUSE THE SUBJECT ARE TAKING METHOTREXATE
     Route: 048
     Dates: start: 20181218, end: 20191021
  17. BUPROPION. [Concomitant]
     Active Substance: BUPROPION
     Indication: MIXED ANXIETY AND DEPRESSIVE DISORDER
     Dosage: 300 MILLIGRAM DAILY;
     Route: 048
     Dates: start: 2017, end: 2019
  18. LEVOTHYROXINE. [Concomitant]
     Active Substance: LEVOTHYROXINE
     Indication: HYPOTHYROIDISM
     Dosage: MONDAY TO FRIDAY
     Route: 048
     Dates: start: 201901
  19. PREGABALIN. [Concomitant]
     Active Substance: PREGABALIN
     Indication: FIBROMYALGIA
     Dosage: 50 MILLIGRAM DAILY;
     Route: 048
     Dates: start: 20190719, end: 20190924

REACTIONS (2)
  - Gastritis [Recovered/Resolved]
  - Gastric mucosa erythema [Recovered/Resolved]

NARRATIVE: CASE EVENT DATE: 20191214
